FAERS Safety Report 24583407 (Version 2)
Quarter: 2024Q4

REPORT INFORMATION
  Report Type: Spontaneous
  Country: US (occurrence: US)
  Receive Date: 20241106
  Receipt Date: 20241113
  Transmission Date: 20250115
  Serious: Yes (Death, Life-Threatening, Hospitalization, Other)
  Sender: ALKEM
  Company Number: None

PATIENT
  Age: 47 Year
  Sex: Female

DRUGS (8)
  1. MYCOPHENOLATE MOFETIL [Suspect]
     Active Substance: MYCOPHENOLATE MOFETIL
     Indication: Immunosuppressant drug therapy
     Dosage: 1.5 GRAM, QD
     Route: 065
  2. TACROLIMUS [Suspect]
     Active Substance: TACROLIMUS
     Indication: Immunosuppressant drug therapy
     Dosage: UNK
     Route: 065
  3. METHYLPREDNISOLONE [Suspect]
     Active Substance: METHYLPREDNISOLONE
     Indication: Transplant rejection
     Dosage: 1 GRAM (EVERY 2 DAYS, EVERY OTHER DAY, TOTAL OF 3 DOSES)
     Route: 042
  4. METHYLPREDNISOLONE [Suspect]
     Active Substance: METHYLPREDNISOLONE
     Dosage: UNK (SLOW TAPER DOSE)
     Route: 065
  5. THYMOCYTE IMMUNE GLOBULIN NOS [Suspect]
     Active Substance: THYMOCYTE IMMUNE GLOBULIN NOS
     Indication: Transplant rejection
     Dosage: UNK
     Route: 065
  6. PREDNISONE [Suspect]
     Active Substance: PREDNISONE
     Indication: Immunosuppressant drug therapy
     Dosage: 10 MILLIGRAM, QD
     Route: 048
  7. RITUXIMAB [Suspect]
     Active Substance: RITUXIMAB
     Indication: Transplant rejection
     Dosage: UNK
     Route: 065
  8. EPCLUSA [Concomitant]
     Active Substance: SOFOSBUVIR\VELPATASVIR
     Indication: Hepatitis C
     Dosage: UNK, QD (400-100 MILLIGRAM)
     Route: 065

REACTIONS (13)
  - Multiple organ dysfunction syndrome [Fatal]
  - Septic shock [Fatal]
  - Disseminated intravascular coagulation [Unknown]
  - Failure to thrive [Unknown]
  - Oesophageal ulcer [Unknown]
  - Spontaneous bacterial peritonitis [Unknown]
  - Sepsis [Unknown]
  - Abdominal abscess [Unknown]
  - Klebsiella infection [Unknown]
  - Cytomegalovirus infection [Unknown]
  - Fungal infection [Unknown]
  - Enterococcal infection [Unknown]
  - Transplant rejection [Recovered/Resolved]
